FAERS Safety Report 5468914-1 (Version None)
Quarter: 2007Q3

REPORT INFORMATION
  Report Type: 
  Country: None (occurrence: None)
  Receive Date: 20070926
  Receipt Date: 20070919
  Transmission Date: 20080115
  Serious: Yes (Hospitalization, Other)
  Sender: FDA-Public Use
  Company Number: US-SHR-US-2007-024447

PATIENT
  Age: 73 Year
  Sex: Male
  Weight: 102 kg

DRUGS (7)
  1. LEUKINE [Suspect]
     Dosage: 500 A?G, 1ST DOSE
     Route: 058
     Dates: start: 20070628, end: 20070628
  2. ETOPOSIDE [Concomitant]
     Dosage: ONE DOSE PER DAY
     Dates: start: 20070625, end: 20070627
  3. CARBOPLATIN [Concomitant]
     Dosage: ONE DOSE PER DAY
     Dates: start: 20070625, end: 20070627
  4. HYDROCHLOROTHIAZIDE [Concomitant]
     Dosage: 25 MG, 1X/DAY
     Route: 048
     Dates: start: 20010101
  5. SIMVASTATIN [Concomitant]
     Dosage: 120 MG, 1X/DAY
     Route: 048
     Dates: start: 20010101
  6. BENZONATATE [Concomitant]
     Indication: COUGH
     Dosage: 100 MG, 6X/DAY
     Route: 048
  7. BETA BLOCKING AGENTS [Concomitant]
     Dosage: UNK, UNK
     Route: 048
     Dates: start: 20070601

REACTIONS (14)
  - BLOOD PRESSURE DECREASED [None]
  - DIZZINESS [None]
  - DROOLING [None]
  - EYE HAEMORRHAGE [None]
  - EYE ROLLING [None]
  - FLUSHING [None]
  - HEART RATE IRREGULAR [None]
  - HYPERHIDROSIS [None]
  - LOSS OF CONSCIOUSNESS [None]
  - NAUSEA [None]
  - NEUROLOGICAL SYMPTOM [None]
  - PULSE ABSENT [None]
  - RETCHING [None]
  - SWOLLEN TONGUE [None]
